FAERS Safety Report 19394799 (Version 1)
Quarter: 2021Q2

REPORT INFORMATION
  Report Type: Spontaneous
  Country: US (occurrence: US)
  Receive Date: 20210609
  Receipt Date: 20210609
  Transmission Date: 20210717
  Serious: Yes (Hospitalization, Other)
  Sender: FDA-Public Use
  Company Number: US-SLATE RUN PHARMACEUTICALS-21US000515

PATIENT

DRUGS (1)
  1. POTASSIUM CHLORIDE. [Suspect]
     Active Substance: POTASSIUM CHLORIDE
     Indication: INTENTIONAL OVERDOSE
     Dosage: 1800 MILLIEQUIVALENT
     Route: 048

REACTIONS (4)
  - Hyperkalaemia [Recovered/Resolved]
  - Haemodynamic instability [Recovered/Resolved]
  - Ileus [Unknown]
  - Intentional overdose [Recovered/Resolved]
